FAERS Safety Report 4339547-5 (Version None)
Quarter: 2004Q2

REPORT INFORMATION
  Report Type: 
  Country: None (occurrence: None)
  Receive Date: 20040412
  Receipt Date: 20030917
  Transmission Date: 20050107
  Serious: Yes (Other)
  Sender: FDA-Public Use
  Company Number: FR-JNJFOC-20030805362

PATIENT
  Age: 80 Year
  Sex: Female

DRUGS (3)
  1. RISPERDAL [Suspect]
  2. EXELON [Concomitant]
  3. RISORDAN (ISOSORBIDE DINITRATE) [Concomitant]

REACTIONS (2)
  - PURPURA [None]
  - THROMBOCYTOPENIA [None]
